FAERS Safety Report 12615747 (Version 1)
Quarter: 2016Q3

REPORT INFORMATION
  Report Type: Spontaneous
  Country: US (occurrence: US)
  Receive Date: 20160802
  Receipt Date: 20160802
  Transmission Date: 20161109
  Serious: No
  Sender: FDA-Public Use
  Company Number: US-009507513-1607USA011523

PATIENT
  Sex: Female
  Weight: 86.6 kg

DRUGS (1)
  1. NEXPLANON [Suspect]
     Active Substance: ETONOGESTREL
     Dosage: DOSE/FREQUENCY REPORTED AS:68 MG/1 ROD EVERY 3 YEARS
     Route: 059
     Dates: start: 20151209

REACTIONS (2)
  - No adverse event [Unknown]
  - Device kink [Not Recovered/Not Resolved]

NARRATIVE: CASE EVENT DATE: 20160719
